FAERS Safety Report 12424666 (Version 2)
Quarter: 2016Q3

REPORT INFORMATION
  Report Type: Spontaneous
  Country: US (occurrence: US)
  Receive Date: 20160601
  Receipt Date: 20160708
  Transmission Date: 20161109
  Serious: No
  Sender: FDA-Public Use
  Company Number: US-PFIZER INC-2014211087

PATIENT
  Age: 54 Year
  Sex: Female

DRUGS (31)
  1. TYLENOL [Concomitant]
     Active Substance: ACETAMINOPHEN
     Indication: PAIN
     Dosage: 2 DF, AS NEEDED (300-30 MG)
     Route: 048
  2. PROVENTIL HFA [Concomitant]
     Active Substance: ALBUTEROL SULFATE
     Dosage: 90 UG, UNK (90 MCG, USE WITH SPACER)
  3. SYNTHROID [Concomitant]
     Active Substance: LEVOTHYROXINE SODIUM
     Dosage: 88 UG, DAILY
     Route: 048
  4. LEVOTHYROXINE SODIUM. [Concomitant]
     Active Substance: LEVOTHYROXINE SODIUM
     Dosage: 1 DF, DAILY
     Route: 048
  5. GABAPENTIN. [Concomitant]
     Active Substance: GABAPENTIN
  6. ZOVIRAX [Concomitant]
     Active Substance: ACYCLOVIR
     Dosage: 5 %, AS NEEDED (EVERY 6 HOURS AS NEEDED) ((2 ANZ, 1 IN 6 AS REQUIRED))
     Route: 061
  7. FOLVITE [Concomitant]
     Active Substance: FOLIC ACID
     Dosage: 1 MG, DAILY
     Route: 048
  8. DUONEB [Concomitant]
     Active Substance: ALBUTEROL SULFATE\IPRATROPIUM BROMIDE
     Dosage: 3 ML, 4X/DAY (0.5 MG-3 MG (2.5 MG BASE)/3 ML; INSTRUCTIONS FOR USE: TAKE 3 MLS BY NEBULIZATION)
  9. METRONIDAZOLE. [Concomitant]
     Active Substance: METRONIDAZOLE
     Dosage: 0.75 %, 2X/DAY
     Route: 061
  10. SPIRIVA [Concomitant]
     Active Substance: TIOTROPIUM BROMIDE MONOHYDRATE
     Dosage: 18 UG, DAILY (INHALE 1 CAPSULE INTO THE LUNGS DAILY)
  11. LYRICA [Suspect]
     Active Substance: PREGABALIN
     Dosage: 50 MG, 3X/DAY (START WITH JUST 1 AT NIGHT) (150 MG (50 MG, 3 IN 1 D)
     Route: 048
     Dates: start: 20160503
  12. SUPER B C [Concomitant]
     Dosage: 1 DF, DAILY
     Route: 048
  13. BENTYL [Concomitant]
     Active Substance: DICYCLOMINE HYDROCHLORIDE
     Dosage: 10 MG, AS NEED (NIGHTLY AS NEEDED FOR UP TO 51 DAYS)
     Route: 048
  14. NIZORAL [Concomitant]
     Active Substance: KETOCONAZOLE
     Dosage: 2 %, 2X/WEEK
     Route: 061
  15. METHOTREXATE. [Concomitant]
     Active Substance: METHOTREXATE
     Dosage: 7.5 MG, WEEKLY
     Route: 048
  16. ZANTAC [Concomitant]
     Active Substance: RANITIDINE HYDROCHLORIDE
     Dosage: UNK
  17. CLEOCIN T [Concomitant]
     Active Substance: CLINDAMYCIN PHOSPHATE
     Dosage: 1 %, 1X/DAY
  18. LYRICA [Suspect]
     Active Substance: PREGABALIN
     Dosage: 50 MG, 2X/DAY (100 MG (50 MG, 2 IN 1 D)
     Route: 048
  19. CELEBREX [Concomitant]
     Active Substance: CELECOXIB
  20. VITAMIN C [Concomitant]
     Active Substance: ASCORBIC ACID
     Dosage: 500 MG, 2X/DAY ((500 MG, 2 IN 1 D))
     Route: 048
  21. ADVAIR HFA [Concomitant]
     Active Substance: FLUTICASONE PROPIONATE\SALMETEROL XINAFOATE
     Dosage: 1 DF, 2X/DAY (INHALE 1 PUFF INTO THE LUNGS 2 TIMES DAILY) (500 - 50 MCG/DOSE)
     Route: 045
  22. NIZORAL [Concomitant]
     Active Substance: KETOCONAZOLE
     Dosage: 2 %, 2X/DAY
     Route: 061
  23. LACTOBAC CMB #3/FOS/PANTETHINE [Concomitant]
     Dosage: 1 DF, DAILY
     Route: 048
  24. THERAGRAN [Concomitant]
     Active Substance: VITAMINS
     Dosage: 1 DF, DAILY
     Route: 048
  25. PRILOSEC [Concomitant]
     Active Substance: OMEPRAZOLE MAGNESIUM
     Dosage: 40 MG, DAILY (TAKE 30 MINUTES TO 1 HOUR BEFORE BREAKFAST)
     Route: 048
  26. KLONOPIN [Concomitant]
     Active Substance: CLONAZEPAM
     Dosage: 2 MG, 1X/DAY (NIGHTLY)
     Route: 048
  27. FLONASE [Concomitant]
     Active Substance: FLUTICASONE PROPIONATE
     Dosage: 50MCG, AS NEEDED (50 MCG/ACTUATION, 1 SPRAY BY EACH NASAL ROUTE DAILY AS NEEDED)
     Route: 045
  28. LEVOMILNACIPRAN [Concomitant]
     Active Substance: LEVOMILNACIPRAN
     Dosage: 40 MG, DAILY
     Route: 048
  29. CLOBETASOL [Concomitant]
     Active Substance: CLOBETASOL
     Dosage: UNK
  30. PROVENTIL HFA [Concomitant]
     Active Substance: ALBUTEROL SULFATE
     Dosage: 180MCG, AS NEEDED (90 MCG/ACTUATION, INHALE 2 PUFFS INTO THE LUNGS EVERY 4 HOURS AS NEEDED)
     Route: 055
  31. CYTOMEL [Concomitant]
     Active Substance: LIOTHYRONINE SODIUM
     Dosage: 5 UG, 1X/DAY
     Route: 048

REACTIONS (5)
  - Drug hypersensitivity [Unknown]
  - Chest pain [Unknown]
  - Bruxism [Unknown]
  - Headache [Unknown]
  - Asthenia [Unknown]
